FAERS Safety Report 9920552 (Version 2)
Quarter: 2014Q1

REPORT INFORMATION
  Report Type: Spontaneous
  Country: US (occurrence: US)
  Receive Date: 20140224
  Receipt Date: 20140306
  Transmission Date: 20141002
  Serious: Yes (Other)
  Sender: FDA-Public Use
  Company Number: US-ABBVIE-14P-163-1204331-00

PATIENT
  Age: 85 Year
  Sex: Male
  Weight: 55.39 kg

DRUGS (9)
  1. CREON [Suspect]
     Indication: PRODUCT USED FOR UNKNOWN INDICATION
     Dates: start: 2004, end: 201211
  2. CREON [Suspect]
     Dosage: WITH EACH MEAL
     Dates: start: 201211, end: 20140214
  3. CREON [Suspect]
     Dosage: 24000 X1 + 12000 X1, WITH EACH MEAL
     Dates: start: 20140215
  4. KEFLEX [Suspect]
     Indication: PRODUCT USED FOR UNKNOWN INDICATION
  5. PREVACID [Concomitant]
     Indication: PRODUCT USED FOR UNKNOWN INDICATION
     Dosage: WITH MEALS
  6. ZANTAC [Concomitant]
     Indication: PRODUCT USED FOR UNKNOWN INDICATION
     Dosage: WITH MEALS
  7. FENASTRIDE [Concomitant]
     Indication: PROSTATOMEGALY
  8. INSULIN [Concomitant]
     Indication: PRODUCT USED FOR UNKNOWN INDICATION
  9. INSULIN [Concomitant]
     Indication: PRODUCT USED FOR UNKNOWN INDICATION

REACTIONS (4)
  - Pancreatic carcinoma recurrent [Recovered/Resolved]
  - Blood glucose decreased [Not Recovered/Not Resolved]
  - Constipation [Recovered/Resolved]
  - Diarrhoea [Unknown]
